FAERS Safety Report 18092326 (Version 1)
Quarter: 2020Q3

REPORT INFORMATION
  Report Type: Spontaneous
  Country: IT (occurrence: IT)
  Receive Date: 20200730
  Receipt Date: 20200730
  Transmission Date: 20201103
  Serious: Yes (Life-Threatening, Other)
  Sender: FDA-Public Use
  Company Number: IT-SUNOVION-2020SUN002239

PATIENT

DRUGS (1)
  1. LATUDA [Suspect]
     Active Substance: LURASIDONE HYDROCHLORIDE
     Indication: PSYCHOTIC SYMPTOM
     Dosage: 111 MG, QD
     Route: 048
     Dates: start: 20190410, end: 20191030

REACTIONS (6)
  - Anxiety [Unknown]
  - Muscle rigidity [Unknown]
  - Mental disorder [Unknown]
  - Major depression [Unknown]
  - Suicidal ideation [Unknown]
  - Off label use [Unknown]

NARRATIVE: CASE EVENT DATE: 20190410
